FAERS Safety Report 10461569 (Version 1)
Quarter: 2014Q3

REPORT INFORMATION
  Report Type: Spontaneous
  Country: US (occurrence: US)
  Receive Date: 20140918
  Receipt Date: 20140918
  Transmission Date: 20150326
  Serious: Yes (Other)
  Sender: FDA-Public Use
  Company Number: US-UCBSA-2014011393

PATIENT
  Sex: Male

DRUGS (3)
  1. TEMOZOLOMIDE [Suspect]
     Active Substance: TEMOZOLOMIDE
  2. PHENYTOIN. [Concomitant]
     Active Substance: PHENYTOIN
  3. KEPPRA [Suspect]
     Active Substance: LEVETIRACETAM
     Indication: CONVULSION
     Dosage: UNK

REACTIONS (6)
  - Nausea [Unknown]
  - Confusional state [Recovering/Resolving]
  - Fatigue [Recovering/Resolving]
  - Neoplasm [Unknown]
  - Dreamy state [Recovering/Resolving]
  - Malaise [Unknown]
